FAERS Safety Report 15061129 (Version 1)
Quarter: 2018Q2

REPORT INFORMATION
  Report Type: Spontaneous
  Country: US (occurrence: US)
  Receive Date: 20180625
  Receipt Date: 20180625
  Transmission Date: 20180711
  Serious: No
  Sender: FDA-Public Use
  Company Number: US-ROCHE-1993097

PATIENT

DRUGS (1)
  1. XELODA [Suspect]
     Active Substance: CAPECITABINE
     Indication: DYSPHAGIA
     Route: 065

REACTIONS (3)
  - Product preparation error [Unknown]
  - No adverse event [Unknown]
  - Dysphagia [Unknown]
